FAERS Safety Report 10469580 (Version 1)
Quarter: 2014Q3

REPORT INFORMATION
  Report Type: Spontaneous
  Country: US (occurrence: None)
  Receive Date: 20140919
  Receipt Date: 20140919
  Transmission Date: 20150326
  Serious: Yes (Hospitalization)
  Sender: FDA-Public Use
  Company Number: 2014AP004588

PATIENT
  Age: 44 Year
  Sex: Male

DRUGS (5)
  1. METOPROLOL (METOPROLOL) [Concomitant]
     Active Substance: METOPROLOL
  2. FOLIC ACID (FOLIC ACID) [Concomitant]
     Active Substance: FOLIC ACID
  3. HYDROXYUREA (HYDROXYCARBAMIDE) [Concomitant]
     Active Substance: HYDROXYUREA
  4. FERRIPROX [Suspect]
     Active Substance: DEFERIPRONE
     Indication: SICKLE CELL ANAEMIA
  5. ISOSORBIDE DINITRATE (ISOSORBIDE DINITRATE) [Concomitant]

REACTIONS (3)
  - Sickle cell anaemia with crisis [None]
  - Lung infection [None]
  - Pyrexia [None]

NARRATIVE: CASE EVENT DATE: 20140822
